FAERS Safety Report 4682679-2 (Version None)
Quarter: 2005Q2

REPORT INFORMATION
  Report Type: 
  Country: None (occurrence: None)
  Receive Date: 20050606
  Receipt Date: 20050527
  Transmission Date: 20051028
  Serious: Yes (Hospitalization)
  Sender: FDA-Public Use
  Company Number: IT-GLAXOSMITHKLINE-B0383032A

PATIENT
  Age: 28 Year
  Sex: Male

DRUGS (4)
  1. AUGMENTIN '125' [Suspect]
     Indication: TOOTH ABSCESS
     Dosage: 2G PER DAY
     Route: 048
     Dates: start: 20050521, end: 20050523
  2. NIMESULIDE [Concomitant]
     Indication: TOOTH ABSCESS
     Dosage: 100MG PER DAY
     Route: 048
     Dates: start: 20050521, end: 20050521
  3. BETAMETHASONE [Concomitant]
     Dosage: 3MG PER DAY
     Route: 042
  4. OXATOMIDE [Concomitant]
     Dosage: 30MG TWICE PER DAY
     Route: 048

REACTIONS (1)
  - URTICARIA GENERALISED [None]
